FAERS Safety Report 5742624-5 (Version None)
Quarter: 2008Q2

REPORT INFORMATION
  Report Type: 
  Country: None (occurrence: None)
  Receive Date: 20080515
  Receipt Date: 20080515
  Transmission Date: 20081010
  Serious: Yes (Hospitalization)
  Sender: FDA-Public Use
  Company Number: None

PATIENT
  Age: 53 Year
  Sex: Female
  Weight: 75.7507 kg

DRUGS (2)
  1. CIPRO [Suspect]
     Indication: BRONCHITIS
     Dosage: 1 TAP 12 HRS ORAL
     Route: 048
     Dates: start: 20080329, end: 20080407
  2. METHYLPREDNISOLONE [Suspect]
     Indication: BRONCHITIS
     Dosage: AS DIRECTED ORAL
     Route: 048
     Dates: start: 20080329, end: 20080403

REACTIONS (3)
  - ABASIA [None]
  - ARTHRALGIA [None]
  - PAIN IN EXTREMITY [None]
